FAERS Safety Report 7044763-8 (Version None)
Quarter: 2010Q4

REPORT INFORMATION
  Report Type: 
  Country: None (occurrence: None)
  Receive Date: 20101014
  Receipt Date: 20101004
  Transmission Date: 20110411
  Serious: Yes (Hospitalization)
  Sender: FDA-Public Use
  Company Number: SE-ELI_LILLY_AND_COMPANY-SE201008004884

PATIENT
  Sex: Female
  Weight: 69.4 kg

DRUGS (15)
  1. H7T-MC-TABY ACUTE CORONARY SYDROME [Suspect]
     Indication: ACUTE CORONARY SYNDROME
     Dosage: UNK, UNK
     Route: 048
     Dates: start: 20081218, end: 20100711
  2. SIMVASTEROL [Concomitant]
     Indication: PROPHYLAXIS
     Dates: start: 20090102
  3. GABAPENTIN [Concomitant]
     Indication: POLYNEUROPATHY
     Dates: start: 20090604
  4. ENALAPRIL MALEATE [Concomitant]
     Indication: HYPERTENSION
     Dosage: UNK, UNK
     Dates: start: 19980101
  5. SELOKEN ZOC [Concomitant]
     Dosage: UNK, UNK
     Dates: start: 20070101
  6. BETOLVIDON [Concomitant]
     Indication: ANAEMIA VITAMIN B12 DEFICIENCY
     Dates: start: 20070101
  7. OMEPRAZOLE [Concomitant]
     Indication: PROPHYLAXIS
     Dates: start: 20080101
  8. ZOPIKLON [Concomitant]
     Indication: INSOMNIA
     Dosage: 5 MG, UNK
     Dates: start: 20081216
  9. VISCOTEARS [Concomitant]
     Indication: DRY EYE
     Dates: start: 20091207
  10. ATROVENT [Concomitant]
     Indication: RHINITIS
     Dates: start: 20091207
  11. MALVITONA [Concomitant]
     Indication: VERTIGO POSITIONAL
     Dates: start: 20100302
  12. FOLACIN [Concomitant]
     Indication: PROPHYLAXIS
     Dates: start: 20081217
  13. SOBRIL [Concomitant]
     Indication: ANXIETY
     Dates: start: 20090508
  14. LANSOPRAZOL [Concomitant]
     Indication: PROPHYLAXIS
     Dates: start: 20100713
  15. AMLODINE [Concomitant]
     Indication: HYPERTENSION
     Dates: start: 20100711, end: 20100712

REACTIONS (1)
  - MYOCARDIAL INFARCTION [None]
